FAERS Safety Report 9567687 (Version 1)
Quarter: 2013Q3

REPORT INFORMATION
  Report Type: Spontaneous
  Country: US (occurrence: US)
  Receive Date: 20130930
  Receipt Date: 20130930
  Transmission Date: 20140515
  Serious: No
  Sender: FDA-Public Use
  Company Number: US-AMGEN-USASP2013001662

PATIENT
  Age: 57 Year
  Sex: Female
  Weight: 71.66 kg

DRUGS (17)
  1. ENBREL [Suspect]
     Indication: RHEUMATOID ARTHRITIS
     Dosage: 50 MG, QWK
     Route: 058
  2. VOLTAREN                           /00372301/ [Concomitant]
     Dosage: 25 MG EC, UNK
  3. SYNTHROID [Concomitant]
     Dosage: 100 MUG, UNK
  4. ATENOLOL [Concomitant]
     Dosage: 100 MG, UNK
  5. VENTOLIN HFA [Concomitant]
     Dosage: UNK
  6. ADVAIR HFA [Concomitant]
     Dosage: 115/21
  7. LOVAZA [Concomitant]
     Dosage: 1 G, UNK
  8. NEXIUM                             /01479302/ [Concomitant]
     Dosage: 20 MG, UNK
  9. IBUPROFEN [Concomitant]
     Dosage: 200 MG, UNK
  10. PAMELOR [Concomitant]
     Dosage: 10 MG, UNK
  11. VITAMIN D                          /00107901/ [Concomitant]
     Dosage: 2000 UNIT, UNK
  12. HYDROCODONE [Concomitant]
     Dosage: PE/CPM
  13. CALCIUM [Concomitant]
     Dosage: 500 UNK, UNK
  14. MULTIVITAMINS, PLAIN [Concomitant]
     Dosage: UNK
  15. FANAPT [Concomitant]
     Dosage: 10 MG, UNK
  16. MAGNESIUM [Concomitant]
     Dosage: 300 MG, UNK
  17. KRILL OMEGA RED OIL [Concomitant]
     Dosage: 1000 MG, UNK

REACTIONS (2)
  - Infection [Unknown]
  - Therapeutic response decreased [Unknown]
